FAERS Safety Report 8548341-0 (Version None)
Quarter: 2012Q3

REPORT INFORMATION
  Report Type: 
  Country: None (occurrence: None)
  Receive Date: 20120730
  Receipt Date: 20120709
  Transmission Date: 20120928
  Serious: No
  Sender: FDA-Public Use
  Company Number: US-JNJFOC-20120603161

PATIENT
  Sex: Female

DRUGS (1)
  1. INVEGA SUSTENNA [Suspect]
     Indication: SCHIZOPHRENIA
     Dosage: 234MG/SOLUTION/234 MG/ ONE INJECTION/NTRAMUSCULAR
     Route: 030
     Dates: start: 20120522, end: 20120522

REACTIONS (2)
  - DIZZINESS [None]
  - DRUG DOSE OMISSION [None]
